FAERS Safety Report 23775330 (Version 1)
Quarter: 2024Q2

REPORT INFORMATION
  Report Type: Spontaneous
  Country: BR (occurrence: BR)
  Receive Date: 20240423
  Receipt Date: 20240423
  Transmission Date: 20240716
  Serious: Yes (Other)
  Sender: FDA-Public Use
  Company Number: BR-BAUSCH-BL-2024-006488

PATIENT
  Age: 68 Year
  Sex: Male
  Weight: 64 kg

DRUGS (3)
  1. ELIDEL [Suspect]
     Active Substance: PIMECROLIMUS
     Indication: Vitiligo
     Dosage: ONE APPLICATION PER DAY
     Route: 065
     Dates: start: 2009, end: 2011
  2. METHOXSALEN [Concomitant]
     Active Substance: METHOXSALEN
     Indication: Product used for unknown indication
  3. PREDNISOLONE [Concomitant]
     Active Substance: PREDNISOLONE
     Indication: Product used for unknown indication

REACTIONS (2)
  - Diabetes mellitus [Not Recovered/Not Resolved]
  - Off label use [Unknown]

NARRATIVE: CASE EVENT DATE: 20110101
